FAERS Safety Report 22332816 (Version 1)
Quarter: 2023Q2

REPORT INFORMATION
  Report Type: Spontaneous
  Country: GB (occurrence: GB)
  Receive Date: 20230517
  Receipt Date: 20230517
  Transmission Date: 20230722
  Serious: Yes (Disabling, Other)
  Sender: FDA-Public Use
  Company Number: GB-MHRA-MED-202305100022114730-SBGJK

PATIENT
  Age: 13 Year
  Sex: Female
  Weight: 45 kg

DRUGS (2)
  1. FLUOXETINE [Suspect]
     Active Substance: FLUOXETINE HYDROCHLORIDE
     Indication: Product used for unknown indication
     Dosage: 100 MILLIGRAM, QD (100MG ONCE A DAY)
     Route: 065
     Dates: start: 20210221, end: 20210427
  2. SERTRALINE [Concomitant]
     Active Substance: SERTRALINE HYDROCHLORIDE
     Indication: Depression
     Dosage: UNK (07-MAY-2021 )
     Route: 065
     Dates: end: 20230306

REACTIONS (3)
  - Post viral fatigue syndrome [Not Recovered/Not Resolved]
  - Suicide attempt [Unknown]
  - Medication error [Unknown]

NARRATIVE: CASE EVENT DATE: 20210221
